FAERS Safety Report 19988825 (Version 1)
Quarter: 2021Q4

REPORT INFORMATION
  Report Type: Report from Study
  Country: None (occurrence: CA)
  Receive Date: 20211024
  Receipt Date: 20211024
  Transmission Date: 20220303
  Serious: Yes (Other)
  Sender: FDA-Public Use
  Company Number: CA-ABBVIE-21K-028-4127597-00

PATIENT
  Sex: Female

DRUGS (1)
  1. HUMIRA [Suspect]
     Active Substance: ADALIMUMAB
     Indication: Crohn^s disease
     Route: 058
     Dates: start: 20110822

REACTIONS (6)
  - Stoma creation [Unknown]
  - Stoma site extravasation [Recovered/Resolved]
  - Injection site pain [Unknown]
  - Limb discomfort [Unknown]
  - Pain in extremity [Unknown]
  - Skin disorder [Recovering/Resolving]
